FAERS Safety Report 4333991-8 (Version None)
Quarter: 2004Q2

REPORT INFORMATION
  Report Type: 
  Country: None (occurrence: None)
  Receive Date: 20040402
  Receipt Date: 20040319
  Transmission Date: 20050107
  Serious: Yes (Hospitalization)
  Sender: FDA-Public Use
  Company Number: DE-SHR-04-023220

PATIENT
  Sex: Female

DRUGS (2)
  1. MIRENA [Suspect]
     Dosage: 20  UG/DAY, CONT, INTRA-UTERINE
     Route: 015
     Dates: start: 19980101, end: 20031101
  2. MIRENA [Suspect]
     Dosage: 20  UG/DAY, CONT, INTRA-UTERINE
     Route: 015
     Dates: start: 20031101, end: 20040319

REACTIONS (9)
  - AGGRESSION [None]
  - AMENORRHOEA [None]
  - ANXIETY [None]
  - DEPRESSION [None]
  - DIFFICULTY IN WALKING [None]
  - HOT FLUSH [None]
  - PANIC ATTACK [None]
  - STRESS SYMPTOMS [None]
  - VAGINAL HAEMORRHAGE [None]
